FAERS Safety Report 8433884 (Version 3)
Quarter: 2013Q3

REPORT INFORMATION
  Report Type: Report from Study
  Country: JP (occurrence: JP)
  Receive Date: 20120229
  Receipt Date: 20130926
  Transmission Date: 20140515
  Serious: Yes (Hospitalization)
  Sender: FDA-Public Use
  Company Number: JP-PFIZER INC-2012020194

PATIENT
  Age: 81 Year
  Sex: Male
  Weight: 49.3 kg

DRUGS (17)
  1. SUNITINIB MALATE [Suspect]
     Indication: PANCREATIC NEUROENDOCRINE TUMOUR
     Dosage: 37.5 MG, 1X/DAY
     Route: 048
     Dates: start: 20101216
  2. SUNITINIB MALATE [Suspect]
     Dosage: 25 MG, 1X/DAY
     Route: 048
     Dates: start: 20101228, end: 20120123
  3. LAC B [Concomitant]
     Indication: PANCREATITIS CHRONIC
     Dosage: 1 DF, 3X/DAY
     Route: 048
  4. ADALAT CR [Concomitant]
     Indication: HYPERTENSION
     Dosage: 20 MG, 1X/DAY
     Route: 048
  5. URSO [Concomitant]
     Indication: CHOLESTASIS
     Dosage: 100 MG, 3X/DAY
     Route: 048
  6. CIBENOL [Concomitant]
     Indication: TACHYARRHYTHMIA
     Dosage: 50 MG, 2X/DAY
     Route: 048
  7. FLIVAS [Concomitant]
     Indication: BENIGN PROSTATIC HYPERPLASIA
     Dosage: 75 MG, 1X/DAY
     Route: 048
  8. JUVELA NICOTINATE [Concomitant]
     Indication: PANCREATITIS CHRONIC
     Dosage: 100 MG, 3X/DAY
     Route: 048
  9. EVIPROSTAT [Concomitant]
     Indication: BENIGN PROSTATIC HYPERPLASIA
     Dosage: 1 DF, 3X/DAY
     Route: 048
  10. FAMOTIDINE [Concomitant]
     Indication: GASTRITIS
     Dosage: 20 MG, 2X/DAY
     Route: 048
     Dates: start: 20101214
  11. HIRUDOID [Concomitant]
     Indication: PROPHYLAXIS
     Dosage: UNK
     Route: 061
     Dates: start: 20101214
  12. LENDORMIN [Concomitant]
     Indication: INSOMNIA
     Dosage: 1.5 DF, 1X/DAY
     Route: 048
     Dates: start: 20110310
  13. BIOFERMIN [Concomitant]
     Indication: PANCREATITIS CHRONIC
     Dosage: UNK
     Route: 048
  14. MIYA BM [Concomitant]
     Indication: PANCREATITIS CHRONIC
     Dosage: 1 DF, 3X/DAY
     Route: 048
     Dates: start: 20110117
  15. PANCREATIN [Concomitant]
     Indication: PANCREATITIS CHRONIC
     Dosage: 2 G, 3X/DAY
     Route: 048
     Dates: start: 20111118
  16. OPALMON [Concomitant]
     Indication: SENSORY DISTURBANCE
     Dosage: 5 UG, 3X/DAY
     Route: 048
     Dates: start: 20111118
  17. LAMISIL [Concomitant]
     Indication: TINEA INFECTION
     Dosage: UNK

REACTIONS (1)
  - Enterocolitis [Recovered/Resolved]
